FAERS Safety Report 9025951 (Version 2)
Quarter: 2013Q3

REPORT INFORMATION
  Report Type: Spontaneous
  Country: DE (occurrence: DE)
  Receive Date: 20130122
  Receipt Date: 20130910
  Transmission Date: 20140515
  Serious: Yes (Hospitalization, Other)
  Sender: FDA-Public Use
  Company Number: DE-ROCHE-1181326

PATIENT
  Age: 73 Year
  Sex: Male
  Weight: 77 kg

DRUGS (12)
  1. AVASTIN [Suspect]
     Indication: COLORECTAL CANCER METASTATIC
     Route: 042
     Dates: start: 20101003, end: 201303
  2. AVASTIN [Suspect]
     Indication: COLON CANCER METASTATIC
  3. 5-FU [Concomitant]
     Indication: COLORECTAL CANCER METASTATIC
     Route: 065
     Dates: end: 201303
  4. ASS [Concomitant]
     Indication: HYPERTENSION
     Route: 048
  5. NORVASC [Concomitant]
     Indication: HYPERTENSION
     Route: 048
     Dates: start: 20121011
  6. PLAVIX [Concomitant]
     Indication: HYPERTENSION
     Route: 048
     Dates: start: 20121011
  7. DELIX (GERMANY) [Concomitant]
     Indication: HYPERTENSION
     Route: 048
     Dates: start: 20121011
  8. DELIX (GERMANY) [Concomitant]
     Indication: TACHYARRHYTHMIA
  9. BIFITERAL [Concomitant]
     Indication: FAECALOMA
     Route: 048
     Dates: start: 20121011
  10. NOVAMINE [Concomitant]
     Indication: PAIN
     Route: 048
  11. IRINOTECAN [Concomitant]
     Indication: COLON CANCER METASTATIC
     Route: 065
     Dates: end: 201303
  12. FOLINIC ACID [Concomitant]
     Indication: COLON CANCER METASTATIC
     Route: 065
     Dates: end: 201303

REACTIONS (6)
  - Vascular graft occlusion [Recovered/Resolved]
  - Hypertension [Recovered/Resolved]
  - Acute myocardial infarction [Recovered/Resolved]
  - Aortic valve stenosis [Unknown]
  - Left ventricular dysfunction [Unknown]
  - Metastases to lung [Unknown]
